FAERS Safety Report 7004337-1 (Version None)
Quarter: 2010Q3

REPORT INFORMATION
  Report Type: 
  Country: None (occurrence: None)
  Receive Date: 20100921
  Receipt Date: 20100913
  Transmission Date: 20110219
  Serious: No
  Sender: FDA-Public Use
  Company Number: US-BIOGENIDEC-2010BI020857

PATIENT
  Age: 52 Year
  Sex: Female

DRUGS (2)
  1. TYSABRI [Suspect]
     Indication: MULTIPLE SCLEROSIS
     Route: 042
     Dates: start: 20100519
  2. BENADRYL [Concomitant]
     Indication: PREMEDICATION

REACTIONS (16)
  - APHASIA [None]
  - CHEST DISCOMFORT [None]
  - CHEST PAIN [None]
  - CONFUSIONAL STATE [None]
  - DIZZINESS [None]
  - DYSPNOEA [None]
  - FATIGUE [None]
  - FEAR [None]
  - FEELING ABNORMAL [None]
  - FEELING HOT [None]
  - FLUSHING [None]
  - GASTROOESOPHAGEAL REFLUX DISEASE [None]
  - IMPAIRED DRIVING ABILITY [None]
  - INSOMNIA [None]
  - MUSCLE SPASMS [None]
  - NERVOUSNESS [None]
